FAERS Safety Report 13422826 (Version 1)
Quarter: 2017Q2

REPORT INFORMATION
  Report Type: Spontaneous
  Country: None (occurrence: US)
  Receive Date: 20170408
  Receipt Date: 20170408
  Transmission Date: 20170830
  Serious: Yes (Hospitalization)
  Sender: FDA-Public Use
  Company Number: None

PATIENT
  Age: 40 Year
  Sex: Female
  Weight: 51.6 kg

DRUGS (4)
  1. MUCOSITIS MOUTH WASH [Concomitant]
  2. STEMETIL [Concomitant]
     Active Substance: PROCHLORPERAZINE MALEATE
  3. CISPLATIN. [Suspect]
     Active Substance: CISPLATIN
     Dates: end: 20170307
  4. DEXAMETHASONE. [Concomitant]
     Active Substance: DEXAMETHASONE

REACTIONS (3)
  - Pyrexia [None]
  - Rash erythematous [None]
  - Flushing [None]

NARRATIVE: CASE EVENT DATE: 20170307
